FAERS Safety Report 7546873-5 (Version None)
Quarter: 2011Q2

REPORT INFORMATION
  Report Type: 
  Country: None (occurrence: None)
  Receive Date: 20110614
  Receipt Date: 20110607
  Transmission Date: 20111010
  Serious: Yes (Other)
  Sender: FDA-Public Use
  Company Number: GR-PFIZER INC-2011125871

PATIENT
  Age: 32 Year
  Sex: Male

DRUGS (3)
  1. LEXOTANIL [Concomitant]
     Indication: MENTAL DISORDER
     Dosage: UNK
  2. VIAGRA [Suspect]
     Indication: ERECTILE DYSFUNCTION
     Dosage: UNK
     Route: 048
     Dates: start: 20090101
  3. ANAFRANIL [Concomitant]
     Indication: MENTAL DISORDER
     Dosage: UNK
     Route: 048

REACTIONS (2)
  - HYPOACUSIS [None]
  - EAR INFECTION [None]
